FAERS Safety Report 20058193 (Version 2)
Quarter: 2021Q4

REPORT INFORMATION
  Report Type: Report from Study
  Country: FR (occurrence: FR)
  Receive Date: 20211111
  Receipt Date: 20211130
  Transmission Date: 20220303
  Serious: Yes (Hospitalization)
  Sender: FDA-Public Use
  Company Number: FR-EVEREST MEDICINES II (HK) LIMITED-2021-0553184

PATIENT
  Sex: Male
  Weight: 83 kg

DRUGS (10)
  1. SACITUZUMAB GOVITECAN [Suspect]
     Active Substance: SACITUZUMAB GOVITECAN
     Indication: Transitional cell carcinoma
     Dosage: 830 MG CYCLE 1 DAY 1 AND CYCLE 1 DAY 8
     Route: 042
     Dates: start: 20211004, end: 20211011
  2. SACITUZUMAB GOVITECAN [Suspect]
     Active Substance: SACITUZUMAB GOVITECAN
     Dosage: UNK
     Route: 042
     Dates: end: 20211119
  3. SMECTA [Concomitant]
     Active Substance: MONTMORILLONITE
     Dosage: UNK
     Dates: start: 20210909
  4. IMODIUM [Concomitant]
     Active Substance: LOPERAMIDE HYDROCHLORIDE
     Dosage: UNK
     Dates: start: 20210909
  5. MAGNESIUM CARBONATE [Concomitant]
     Active Substance: MAGNESIUM CARBONATE
     Dosage: UNK
     Dates: start: 20211011
  6. POTASSIUM CHLORIDE [Concomitant]
     Active Substance: POTASSIUM CHLORIDE
     Dosage: UNK
     Dates: start: 20211011
  7. METHYLPREDNISOLONE SODIUM SUCCINATE [Concomitant]
     Active Substance: METHYLPREDNISOLONE SODIUM SUCCINATE
     Dosage: UNK
     Dates: start: 20211004
  8. METOCLOPRAMIDE [Concomitant]
     Active Substance: METOCLOPRAMIDE
     Dosage: UNK
     Dates: start: 20211004
  9. LINEZOLID [Concomitant]
     Active Substance: LINEZOLID
     Dosage: UNK
     Dates: start: 20211102, end: 20211123
  10. RACECADOTRIL [Concomitant]
     Active Substance: RACECADOTRIL

REACTIONS (7)
  - Enteritis [Recovered/Resolved with Sequelae]
  - Acute kidney injury [Recovered/Resolved]
  - Febrile neutropenia [Recovered/Resolved]
  - Streptococcal sepsis [Recovered/Resolved]
  - Pyelonephritis [Recovered/Resolved]
  - Candida sepsis [Recovered/Resolved]
  - Bacterial sepsis [Recovered/Resolved]

NARRATIVE: CASE EVENT DATE: 20211016
